FAERS Safety Report 7199932-3 (Version None)
Quarter: 2010Q4

REPORT INFORMATION
  Report Type: 
  Country: None (occurrence: None)
  Receive Date: 20101228
  Receipt Date: 20101220
  Transmission Date: 20110411
  Serious: No
  Sender: FDA-Public Use
  Company Number: US-PFIZER INC-2010176426

PATIENT
  Sex: Female
  Weight: 65.7 kg

DRUGS (2)
  1. LYRICA [Suspect]
     Indication: PAIN IN EXTREMITY
     Dosage: 150 MG TWICE DAILY
     Dates: start: 20100101
  2. VICODIN [Concomitant]
     Dosage: UNK

REACTIONS (5)
  - DYSURIA [None]
  - THYROID DISORDER [None]
  - URINE ABNORMALITY [None]
  - URINE ODOUR ABNORMAL [None]
  - VISUAL IMPAIRMENT [None]
